FAERS Safety Report 6902690-8 (Version None)
Quarter: 2010Q3

REPORT INFORMATION
  Report Type: 
  Country: None (occurrence: None)
  Receive Date: 20100803
  Receipt Date: 20080604
  Transmission Date: 20110219
  Serious: No
  Sender: FDA-Public Use
  Company Number: US-PFIZER INC-2008047808

PATIENT
  Sex: Female
  Weight: 59.09 kg

DRUGS (10)
  1. LYRICA [Suspect]
     Indication: FIBROMYALGIA
     Route: 048
     Dates: start: 20071101, end: 20071101
  2. LASIX [Concomitant]
  3. ASTHALIN [Concomitant]
  4. ESTRACE [Concomitant]
  5. IBANDRONATE SODIUM [Concomitant]
  6. COMPAZINE [Concomitant]
  7. CARAFATE [Concomitant]
  8. ZYRTEC [Concomitant]
  9. LIDODERM [Concomitant]
  10. CELEBREX [Concomitant]

REACTIONS (2)
  - NERVOUSNESS [None]
  - SOMNOLENCE [None]
